FAERS Safety Report 12109953 (Version 1)
Quarter: 2016Q1

REPORT INFORMATION
  Report Type: Spontaneous
  Country: US (occurrence: None)
  Receive Date: 20160223
  Receipt Date: 20160223
  Transmission Date: 20160526
  Serious: Yes (Other)
  Sender: FDA-Public Use
  Company Number: None

PATIENT
  Age: 58 Year
  Sex: Female
  Weight: 83.46 kg

DRUGS (21)
  1. HYDROCODINE-ACETAMINOPHEN [Concomitant]
  2. CIPROFLOXACIN HCL [Suspect]
     Active Substance: CIPROFLOXACIN HYDROCHLORIDE
     Indication: BACTERIAL INFECTION
     Dosage: 500MG QTY 20 TWICE DAILY TAKEN BY MOUTH
     Route: 048
     Dates: start: 20160218, end: 20160218
  3. MULTAQ [Concomitant]
     Active Substance: DRONEDARONE
  4. MECLIZINE [Concomitant]
     Active Substance: MECLIZINE HYDROCHLORIDE
  5. ONDANSETRON HCL [Concomitant]
     Active Substance: ONDANSETRON HYDROCHLORIDE
  6. TIZANIDINE HCL [Concomitant]
     Active Substance: TIZANIDINE HYDROCHLORIDE
  7. PROMETHAZINE [Concomitant]
     Active Substance: PROMETHAZINE\PROMETHAZINE HYDROCHLORIDE
  8. AMITIZA [Concomitant]
     Active Substance: LUBIPROSTONE
  9. IMPLANT LOOP RECORDER [Concomitant]
  10. DILTIAZEM 24 HR ER [Concomitant]
  11. PANTOPRAZOLE [Concomitant]
     Active Substance: PANTOPRAZOLE SODIUM
  12. SYMBICORT [Concomitant]
     Active Substance: BUDESONIDE\FORMOTEROL FUMARATE DIHYDRATE
  13. GABAPENTIN. [Concomitant]
     Active Substance: GABAPENTIN
  14. DEXAPANTHEN/CHOLINE [Concomitant]
  15. ANAL FISSURE COMPOUND OINTMENT [Concomitant]
  16. PHILLIPS COLON HEALTH PROBIOTIC [Concomitant]
     Active Substance: PROBIOTICS NOS
  17. TRIPLE OMEGA COMPLEX 3-6-9 [Concomitant]
  18. NASONEX [Concomitant]
     Active Substance: MOMETASONE FUROATE
  19. CIPROFLOXACIN HCL [Suspect]
     Active Substance: CIPROFLOXACIN HYDROCHLORIDE
     Indication: EAR CONGESTION
     Dosage: 500MG QTY 20 TWICE DAILY TAKEN BY MOUTH
     Route: 048
     Dates: start: 20160218, end: 20160218
  20. LEVOTHYROXIDE [Concomitant]
  21. ZYRTEC [Concomitant]
     Active Substance: CETIRIZINE HYDROCHLORIDE

REACTIONS (10)
  - Palpitations [None]
  - Hallucinations, mixed [None]
  - Drug dispensing error [None]
  - Feeling abnormal [None]
  - Drug effect decreased [None]
  - Disorientation [None]
  - Gait disturbance [None]
  - Labelled drug-drug interaction medication error [None]
  - Dysarthria [None]
  - Abasia [None]

NARRATIVE: CASE EVENT DATE: 20160218
